FAERS Safety Report 23195411 (Version 1)
Quarter: 2023Q4

REPORT INFORMATION
  Report Type: Spontaneous
  Country: IT (occurrence: IT)
  Receive Date: 20231117
  Receipt Date: 20231117
  Transmission Date: 20240110
  Serious: Yes (Other)
  Sender: FDA-Public Use
  Company Number: None

PATIENT
  Age: 51 Year
  Sex: Female
  Weight: 49 kg

DRUGS (3)
  1. DOCETAXEL [Suspect]
     Active Substance: DOCETAXEL\DOCETAXEL ANHYDROUS
     Indication: Breast cancer
     Dosage: START OF THERAPY 04/19/2023 - II CYCLE - THERAPY EVERY 21 DAYS
     Dates: start: 20230510, end: 20230510
  2. CARBOPLATIN [Suspect]
     Active Substance: CARBOPLATIN
     Indication: Breast cancer
     Dosage: START OF THERAPY 04/19/2023 - II CYCLE - THERAPY EVERY 21 DAYS
     Dates: start: 20230510, end: 20230510
  3. TRASTUZUMAB [Suspect]
     Active Substance: TRASTUZUMAB
     Indication: Breast cancer
     Dosage: START OF THERAPY 04/19/2023 - II CYCLE - THERAPY EVERY 21 DAYS
     Dates: start: 20230510, end: 20230510

REACTIONS (1)
  - Leukopenia [Recovered/Resolved]

NARRATIVE: CASE EVENT DATE: 20230516
